FAERS Safety Report 5696301-X (Version None)
Quarter: 2008Q2

REPORT INFORMATION
  Report Type: 
  Country: None (occurrence: None)
  Receive Date: 20080407
  Receipt Date: 20080326
  Transmission Date: 20081010
  Serious: Yes (Other)
  Sender: FDA-Public Use
  Company Number: US-PFIZER INC-2008011324

PATIENT
  Sex: Female
  Weight: 60.8 kg

DRUGS (6)
  1. LIPITOR [Suspect]
     Indication: BLOOD CHOLESTEROL
     Route: 048
  2. FOSAMAX [Concomitant]
     Route: 048
  3. SEROQUEL [Concomitant]
  4. CYTOTEC [Concomitant]
  5. CYMBALTA [Concomitant]
  6. NEXIUM [Concomitant]

REACTIONS (6)
  - FATIGUE [None]
  - HAEMORRHAGE SUBCUTANEOUS [None]
  - MUSCLE FATIGUE [None]
  - OEDEMA PERIPHERAL [None]
  - SPIDER VEIN [None]
  - VASCULAR SKIN DISORDER [None]
